FAERS Safety Report 25865985 (Version 1)
Quarter: 2025Q3

REPORT INFORMATION
  Report Type: Spontaneous
  Country: EU (occurrence: EU)
  Receive Date: 20250930
  Receipt Date: 20250930
  Transmission Date: 20251021
  Serious: Yes (Hospitalization, Other)
  Sender: AMGEN
  Company Number: EU-AMGEN-CZESP2025190455

PATIENT
  Age: 93 Year
  Sex: Female

DRUGS (5)
  1. PROLIA [Suspect]
     Active Substance: DENOSUMAB
     Indication: Osteoporosis
     Route: 065
  2. DONEPEZIL [Concomitant]
     Active Substance: DONEPEZIL
  3. APIXABAN [Concomitant]
     Active Substance: APIXABAN
  4. TRIMETAZIDINE [Concomitant]
     Active Substance: TRIMETAZIDINE
  5. OMEPRAZOLE [Concomitant]
     Active Substance: OMEPRAZOLE

REACTIONS (14)
  - Pulmonary embolism [Unknown]
  - COVID-19 [Unknown]
  - Superinfection bacterial [Unknown]
  - Hypokalaemia [Unknown]
  - Hypercalcaemia [Recovering/Resolving]
  - Cognitive disorder [Unknown]
  - Orthostatic hypotension [Recovering/Resolving]
  - Hypoalbuminaemia [Unknown]
  - Blood parathyroid hormone decreased [Unknown]
  - Hyponatraemia [Unknown]
  - Hypochloraemia [Unknown]
  - Dizziness [Unknown]
  - Decreased appetite [Unknown]
  - Dyspepsia [Unknown]

NARRATIVE: CASE EVENT DATE: 20140101
